FAERS Safety Report 9407926 (Version 1)
Quarter: 2013Q3

REPORT INFORMATION
  Report Type: Spontaneous
  Country: US (occurrence: US)
  Receive Date: 20130718
  Receipt Date: 20130718
  Transmission Date: 20140515
  Serious: Yes (Other)
  Sender: FDA-Public Use
  Company Number: US-TEVA-418829USA

PATIENT
  Sex: Female

DRUGS (2)
  1. NUVIGIL [Suspect]
     Route: 048
     Dates: end: 20130708
  2. DOXYCYCLINE [Concomitant]

REACTIONS (17)
  - Suicide attempt [Unknown]
  - Drug withdrawal syndrome [Unknown]
  - Scab [Unknown]
  - Blister [Unknown]
  - Nausea [Unknown]
  - Vomiting [Unknown]
  - Abdominal distension [Unknown]
  - Nasal congestion [Unknown]
  - Headache [Unknown]
  - Thinking abnormal [Unknown]
  - Dehydration [Unknown]
  - Blood electrolytes decreased [Unknown]
  - Hypoaesthesia [Unknown]
  - Pain in extremity [Unknown]
  - Dry skin [Unknown]
  - Irritability [Unknown]
  - Aggression [Unknown]
